FAERS Safety Report 10166385 (Version 2)
Quarter: 2014Q2

REPORT INFORMATION
  Report Type: Report from Study
  Country: GB (occurrence: GB)
  Receive Date: 20140512
  Receipt Date: 20140512
  Transmission Date: 20141212
  Serious: Yes (Other)
  Sender: FDA-Public Use
  Company Number: GB-ACCORD-023544

PATIENT
  Age: 10 Year
  Sex: Male

DRUGS (1)
  1. TACROLIMUS [Suspect]
     Indication: IMMUNOSUPPRESSION

REACTIONS (2)
  - Toxicity to various agents [Recovered/Resolved]
  - Posterior reversible encephalopathy syndrome [Recovered/Resolved]
